FAERS Safety Report 14799349 (Version 1)
Quarter: 2018Q2

REPORT INFORMATION
  Report Type: Spontaneous
  Country: FR (occurrence: FR)
  Receive Date: 20180424
  Receipt Date: 20180424
  Transmission Date: 20180711
  Serious: Yes (Hospitalization, Other)
  Sender: FDA-Public Use
  Company Number: FR-UCBSA-2018017877

PATIENT
  Age: 69 Year
  Sex: Male

DRUGS (7)
  1. OCTAGAM IMMUNE GLOBULIN (HUMAN) [Suspect]
     Active Substance: HUMAN IMMUNOGLOBULIN G
     Indication: ENCEPHALITIS AUTOIMMUNE
     Dosage: UNK
     Route: 042
  2. PROPRANOLOL [Suspect]
     Active Substance: PROPRANOLOL HYDROCHLORIDE
     Indication: PRODUCT USED FOR UNKNOWN INDICATION
     Dosage: 20 MG A DAY
     Route: 048
  3. SOLU-MEDROL [Suspect]
     Active Substance: METHYLPREDNISOLONE SODIUM SUCCINATE
     Indication: ENCEPHALITIS AUTOIMMUNE
     Dosage: UNK
  4. TAHOR [Suspect]
     Active Substance: ATORVASTATIN CALCIUM
     Indication: DYSLIPIDAEMIA
     Dosage: 1 DF,  A DAY
     Route: 048
  5. VIMPAT [Suspect]
     Active Substance: LACOSAMIDE
     Indication: ENCEPHALITIS AUTOIMMUNE
     Dosage: UNK
     Route: 048
  6. SALAZOPYRINE [Suspect]
     Active Substance: SULFASALAZINE
     Indication: CROHN^S DISEASE
     Dosage: UNK
     Route: 048
  7. ENDOXAN [Suspect]
     Active Substance: CYCLOPHOSPHAMIDE
     Indication: ENCEPHALITIS AUTOIMMUNE
     Dosage: UNK

REACTIONS (1)
  - Lupus-like syndrome [Not Recovered/Not Resolved]

NARRATIVE: CASE EVENT DATE: 20180215
